FAERS Safety Report 23280898 (Version 1)
Quarter: 2023Q4

REPORT INFORMATION
  Report Type: Spontaneous
  Country: US (occurrence: US)
  Receive Date: 20231211
  Receipt Date: 20231211
  Transmission Date: 20240110
  Serious: No
  Sender: FDA-Public Use
  Company Number: US-NOVEN PHARMACEUTICALS, INC.-2023-NOV-US000179

PATIENT
  Sex: Female

DRUGS (5)
  1. MINIVELLE [Suspect]
     Active Substance: ESTRADIOL
     Indication: Menopausal symptoms
     Dosage: 0.025 MG, UNKNOWN
     Route: 062
  2. MINIVELLE [Suspect]
     Active Substance: ESTRADIOL
     Dosage: 0.0375 MG, UNKNOWN
     Route: 062
     Dates: start: 2016
  3. PROGESTERONE [Suspect]
     Active Substance: PROGESTERONE
     Indication: Menopausal symptoms
     Dosage: 100 MG, DAILY
     Route: 048
  4. PROGESTERONE [Suspect]
     Active Substance: PROGESTERONE
     Dosage: 200 MG, DAILY
     Route: 048
  5. PROGESTERONE [Suspect]
     Active Substance: PROGESTERONE
     Dosage: 100 MG, DAILY
     Route: 048

REACTIONS (4)
  - Feeling abnormal [Unknown]
  - Postmenopausal haemorrhage [Recovered/Resolved]
  - Abdominal distension [Unknown]
  - Drug ineffective [Recovered/Resolved]
